FAERS Safety Report 7978408-7 (Version None)
Quarter: 2011Q4

REPORT INFORMATION
  Report Type: 
  Country: None (occurrence: None)
  Receive Date: 20111205
  Receipt Date: 20111122
  Transmission Date: 20120403
  Serious: Yes (Other)
  Sender: FDA-Public Use
  Company Number: 2011SP055017

PATIENT
  Age: 66 Year
  Sex: Male

DRUGS (1)
  1. DIPROLENE [Suspect]
     Indication: ECZEMA
     Dosage: 2 DF; QD;
     Dates: start: 20111121

REACTIONS (1)
  - HYPOGLYCAEMIA [None]
